FAERS Safety Report 10012643 (Version 1)
Quarter: 2014Q1

REPORT INFORMATION
  Report Type: Report from Study
  Country: IN (occurrence: IN)
  Receive Date: 20140314
  Receipt Date: 20140314
  Transmission Date: 20141002
  Serious: Yes (Hospitalization, Other)
  Sender: FDA-Public Use
  Company Number: PHHY2014IN030454

PATIENT
  Age: 26 Year
  Sex: Male

DRUGS (2)
  1. MYFORTIC [Suspect]
     Indication: RENAL TRANSPLANT
     Dosage: 360 MG, BID
     Route: 048
     Dates: start: 20110808, end: 20140225
  2. TACROLIMUS [Suspect]
     Dosage: 1.5 MG, BID
     Route: 048
     Dates: start: 20110808, end: 20140225

REACTIONS (2)
  - Bowel movement irregularity [Recovering/Resolving]
  - Blood creatinine increased [Recovering/Resolving]
